FAERS Safety Report 5518187-6 (Version None)
Quarter: 2007Q4

REPORT INFORMATION
  Report Type: 
  Country: None (occurrence: None)
  Receive Date: 20071113
  Receipt Date: 20071113
  Transmission Date: 20080405
  Serious: Yes (Hospitalization)
  Sender: FDA-Public Use
  Company Number: None

PATIENT
  Age: 79 Year
  Sex: Female
  Weight: 45.8133 kg

DRUGS (1)
  1. RITUXAN [Suspect]
     Indication: LYMPHOMA
     Dosage: 750 MG IV
     Route: 042
     Dates: start: 20071106

REACTIONS (8)
  - DIARRHOEA [None]
  - DYSPNOEA [None]
  - GROIN PAIN [None]
  - LETHARGY [None]
  - NAUSEA [None]
  - PAIN IN EXTREMITY [None]
  - PARAESTHESIA [None]
  - VOMITING [None]
